FAERS Safety Report 8709575 (Version 4)
Quarter: 2013Q1

REPORT INFORMATION
  Report Type: Spontaneous
  Country: US (occurrence: US)
  Receive Date: 20120806
  Receipt Date: 20130205
  Transmission Date: 20140127
  Serious: No
  Sender: FDA-Public Use
  Company Number: US-PFIZER INC-2012187452

PATIENT
  Age: 49 Year
  Sex: Female

DRUGS (3)
  1. CLINDAMYCIN PHOSPHATE [Suspect]
     Dosage: UNK
  2. CODEINE [Suspect]
     Dosage: UNK
  3. DARVON [Suspect]
     Indication: HEADACHE
     Dosage: UNK
     Dates: start: 2010

REACTIONS (3)
  - Drug hypersensitivity [Unknown]
  - Abdominal pain upper [Unknown]
  - Diarrhoea [Unknown]
